FAERS Safety Report 12296510 (Version 1)
Quarter: 2016Q2

REPORT INFORMATION
  Report Type: Spontaneous
  Country: GB (occurrence: GB)
  Receive Date: 20160422
  Receipt Date: 20160422
  Transmission Date: 20160815
  Serious: Yes (Life-Threatening)
  Sender: FDA-Public Use
  Company Number: GB-WATSON-2016-08324

PATIENT
  Age: 44 Year
  Sex: Male
  Weight: 84 kg

DRUGS (5)
  1. OLANZAPINE. [Concomitant]
     Active Substance: OLANZAPINE
     Indication: VERBAL ABUSE
     Dosage: UNK
     Route: 065
     Dates: start: 20160317
  2. PROMETHAZINE [Suspect]
     Active Substance: PROMETHAZINE\PROMETHAZINE HYDROCHLORIDE
     Indication: AGITATION
     Dosage: 25 MG, BID, ONCE AT 08:00 AND ONCE AT 22:00
     Route: 048
     Dates: start: 20151017
  3. FLUCLOXACILLIN (UNKNOWN) [Suspect]
     Active Substance: FLUCLOXACILLIN
     Indication: LOCALISED INFECTION
     Dosage: UNK
     Route: 065
     Dates: start: 20160324
  4. CLONAZEPAM. [Concomitant]
     Active Substance: CLONAZEPAM
     Indication: VERBAL ABUSE
     Dosage: UNK
     Route: 065
     Dates: start: 20151017
  5. EPILIM [Concomitant]
     Active Substance: VALPROATE SODIUM
     Indication: PRODUCT USED FOR UNKNOWN INDICATION
     Dosage: UNK
     Route: 065
     Dates: start: 20160401

REACTIONS (7)
  - Reaction to drug excipients [Unknown]
  - Agitation [Unknown]
  - Aggression [Unknown]
  - Drug interaction [Not Recovered/Not Resolved]
  - Oedema peripheral [Not Recovered/Not Resolved]
  - Skin infection [Not Recovered/Not Resolved]
  - Medication error [Unknown]

NARRATIVE: CASE EVENT DATE: 20160324
